FAERS Safety Report 14309372 (Version 6)
Quarter: 2018Q1

REPORT INFORMATION
  Report Type: Spontaneous
  Country: JP (occurrence: JP)
  Receive Date: 20171220
  Receipt Date: 20180205
  Transmission Date: 20180509
  Serious: Yes (Hospitalization, Other)
  Sender: FDA-Public Use
  Company Number: JP-ELI_LILLY_AND_COMPANY-JP201712006107

PATIENT
  Age: 73 Year
  Sex: Male
  Weight: 57 kg

DRUGS (6)
  1. CYRAMZA [Suspect]
     Active Substance: RAMUCIRUMAB
     Indication: ADENOCARCINOMA GASTRIC
     Dosage: 400 MG, CYCLICAL
     Route: 041
     Dates: start: 20171018, end: 20171122
  2. PACLITAXEL. [Suspect]
     Active Substance: PACLITAXEL
     Indication: ADENOCARCINOMA GASTRIC
     Dosage: 100 MG, CYCLICAL
     Route: 042
     Dates: start: 20171018, end: 20171122
  3. DEXART [Concomitant]
     Active Substance: DEXAMETHASONE SODIUM PHOSPHATE
     Indication: PROPHYLAXIS
     Dosage: 6.6 MG, DAILY
     Route: 042
     Dates: start: 20171018, end: 20171122
  4. ELPLAT [Suspect]
     Active Substance: OXALIPLATIN
     Indication: ADENOCARCINOMA GASTRIC
     Dosage: 200 MG, UNK
     Route: 065
     Dates: start: 20170726, end: 20170926
  5. TS-1 [Suspect]
     Active Substance: GIMERACIL\OTERACIL\TEGAFUR
     Indication: ADENOCARCINOMA GASTRIC
     Dosage: 80 MG, UNK
     Route: 065
     Dates: start: 20170726, end: 20170926
  6. FAMOTIDINE. [Concomitant]
     Active Substance: FAMOTIDINE
     Indication: PROPHYLAXIS
     Dosage: 20 MG, DAILY
     Route: 042
     Dates: start: 20171018, end: 20171122

REACTIONS (5)
  - Lung disorder [Recovering/Resolving]
  - Pleural effusion [Recovering/Resolving]
  - Dyspnoea [Unknown]
  - Respiratory tract infection [Recovering/Resolving]
  - Cardiac failure [Recovering/Resolving]

NARRATIVE: CASE EVENT DATE: 20171209
